FAERS Safety Report 20229081 (Version 1)
Quarter: 2021Q4

REPORT INFORMATION
  Report Type: Spontaneous
  Country: US (occurrence: US)
  Receive Date: 20211225
  Receipt Date: 20211225
  Transmission Date: 20220303
  Serious: No
  Sender: FDA-Public Use
  Company Number: US-SANOFI-00907723

PATIENT
  Age: 72 Year
  Sex: Male
  Weight: 66.213 kg

DRUGS (1)
  1. DUPIXENT [Suspect]
     Active Substance: DUPILUMAB
     Dosage: 300 MG
     Route: 058
     Dates: start: 20211214

REACTIONS (2)
  - Ocular discomfort [Unknown]
  - Hordeolum [Unknown]

NARRATIVE: CASE EVENT DATE: 20211214
